FAERS Safety Report 19177657 (Version 1)
Quarter: 2021Q2

REPORT INFORMATION
  Report Type: Report from Study
  Country: AU (occurrence: AU)
  Receive Date: 20210426
  Receipt Date: 20210426
  Transmission Date: 20210717
  Serious: Yes (Hospitalization)
  Sender: FDA-Public Use
  Company Number: AU-BRISTOL-MYERS SQUIBB COMPANY-BMS-2021-038480

PATIENT
  Age: 33 Year
  Sex: Female

DRUGS (5)
  1. PACLITAXEL. [Suspect]
     Active Substance: PACLITAXEL
     Indication: BREAST CANCER
     Dosage: 200 ABSENT
     Route: 042
     Dates: start: 20210217, end: 20210414
  2. MELATONIN [Concomitant]
     Active Substance: MELATONIN
     Indication: HEADACHE
  3. CARBOPLATIN. [Suspect]
     Active Substance: CARBOPLATIN
     Indication: BREAST CANCER
     Dosage: 850 ABSENT
     Route: 042
     Dates: start: 20210217, end: 20210414
  4. NIVOLUMAB [Suspect]
     Active Substance: NIVOLUMAB
     Indication: BREAST CANCER
     Dosage: 360 MILLIGRAM
     Route: 042
     Dates: start: 20210217, end: 20210414
  5. QUETIAPINE. [Concomitant]
     Active Substance: QUETIAPINE
     Indication: HEADACHE
     Route: 065

REACTIONS (1)
  - Non-cardiac chest pain [Not Recovered/Not Resolved]

NARRATIVE: CASE EVENT DATE: 20210416
